FAERS Safety Report 10243417 (Version 2)
Quarter: 2014Q2

REPORT INFORMATION
  Report Type: Spontaneous
  Country: US (occurrence: None)
  Receive Date: 20140616
  Receipt Date: 20140618
  Transmission Date: 20141212
  Serious: Yes (Life-Threatening, Hospitalization)
  Sender: FDA-Public Use
  Company Number: US-H14001-14-00014

PATIENT
  Age: 62 Year
  Sex: Male

DRUGS (5)
  1. AMIODARONE [Suspect]
     Indication: ATRIAL FIBRILLATION
     Dosage: 400 MG (200 MG,2 IN 1 D)
  2. ASPIRIN (ACETYLSALICYLIC ACID) (UNKNOWN) (ACETYLSALICYLIC ACID) [Concomitant]
  3. METOPROLOL [Concomitant]
  4. LISINOPRIL [Concomitant]
  5. FUROSEMIDE [Concomitant]

REACTIONS (11)
  - Hypothermia [None]
  - Respiratory failure [None]
  - Blood thyroid stimulating hormone increased [None]
  - Thyroxine free decreased [None]
  - Mental status changes [None]
  - Unresponsive to stimuli [None]
  - Hypotension [None]
  - Hypoglycaemia [None]
  - Bradycardia [None]
  - Lethargy [None]
  - Cold sweat [None]
